FAERS Safety Report 5824041-2 (Version None)
Quarter: 2008Q3

REPORT INFORMATION
  Report Type: 
  Country: None (occurrence: None)
  Receive Date: 20080728
  Receipt Date: 20080717
  Transmission Date: 20090109
  Serious: Yes (Other)
  Sender: FDA-Public Use
  Company Number: US-BAYER-200828469NA

PATIENT

DRUGS (1)
  1. SORAFENIB [Suspect]
     Indication: SARCOMA

REACTIONS (14)
  - ALANINE AMINOTRANSFERASE INCREASED [None]
  - ASPARTATE AMINOTRANSFERASE INCREASED [None]
  - FATIGUE [None]
  - GASTROINTESTINAL DISORDER [None]
  - HAEMOGLOBIN DECREASED [None]
  - HYPERBILIRUBINAEMIA [None]
  - HYPERGLYCAEMIA [None]
  - HYPERTENSION [None]
  - HYPOALBUMINAEMIA [None]
  - HYPOCALCAEMIA [None]
  - HYPOPHOSPHATAEMIA [None]
  - LEUKOPENIA [None]
  - LYMPHOPENIA [None]
  - SKIN TOXICITY [None]
